FAERS Safety Report 18818362 (Version 1)
Quarter: 2021Q1

REPORT INFORMATION
  Report Type: Spontaneous
  Country: US (occurrence: US)
  Receive Date: 20210202
  Receipt Date: 20210202
  Transmission Date: 20210419
  Serious: No
  Sender: FDA-Public Use
  Company Number: US-BAUSCH-BL-2021-001692

PATIENT
  Age: 6 Decade
  Sex: Female

DRUGS (2)
  1. TRULANCE [Suspect]
     Active Substance: PLECANATIDE
     Dosage: STOCK BOTTLE OF 30 TABLETS
     Route: 048
     Dates: start: 202012
  2. TRULANCE [Suspect]
     Active Substance: PLECANATIDE
     Indication: CONSTIPATION
     Dosage: BLISTER PACK
     Route: 048
     Dates: start: 2017, end: 202012

REACTIONS (2)
  - Product quality issue [Unknown]
  - Therapeutic product effect decreased [Unknown]
